FAERS Safety Report 22056285 (Version 1)
Quarter: 2023Q1

REPORT INFORMATION
  Report Type: Spontaneous
  Country: HR (occurrence: HR)
  Receive Date: 20230302
  Receipt Date: 20230302
  Transmission Date: 20230417
  Serious: Yes (Hospitalization, Other)
  Sender: FDA-Public Use
  Company Number: HR-JNJFOC-20230254576

PATIENT
  Sex: Male
  Weight: 97 kg

DRUGS (2)
  1. IMBRUVICA [Suspect]
     Active Substance: IBRUTINIB
     Indication: Lymphocytic lymphoma
     Route: 048
  2. XARELTO [Suspect]
     Active Substance: RIVAROXABAN
     Indication: Deep vein thrombosis
     Route: 065

REACTIONS (5)
  - Deep vein thrombosis [Unknown]
  - Petechiae [Unknown]
  - Dyspnoea [Unknown]
  - Flatulence [Unknown]
  - Haemothorax [Unknown]
